FAERS Safety Report 19656283 (Version 1)
Quarter: 2021Q3

REPORT INFORMATION
  Report Type: Spontaneous
  Country: JP (occurrence: JP)
  Receive Date: 20210804
  Receipt Date: 20210804
  Transmission Date: 20211014
  Serious: Yes (Death, Hospitalization, Other)
  Sender: FDA-Public Use
  Company Number: JP-PFIZER INC-202100941127

PATIENT
  Age: 52 Year
  Sex: Female

DRUGS (1)
  1. SULFASALAZINE. [Suspect]
     Active Substance: SULFASALAZINE
     Indication: RHEUMATOID ARTHRITIS
     Dosage: UNK

REACTIONS (6)
  - Type 1 diabetes mellitus [Fatal]
  - Cerebral haemorrhage [Fatal]
  - Drug reaction with eosinophilia and systemic symptoms [Fatal]
  - Diabetic ketoacidosis [Fatal]
  - Subcutaneous haematoma [Fatal]
  - Factor XIII deficiency [Fatal]
